FAERS Safety Report 25537284 (Version 1)
Quarter: 2025Q3

REPORT INFORMATION
  Report Type: Spontaneous
  Country: CN (occurrence: CN)
  Receive Date: 20250710
  Receipt Date: 20250710
  Transmission Date: 20251020
  Serious: Yes (Other)
  Sender: BEIGENE
  Company Number: CN-BEIGENE-BGN-2025-010916

PATIENT
  Age: 39 Year
  Weight: 46 kg

DRUGS (16)
  1. TISLELIZUMAB [Suspect]
     Active Substance: TISLELIZUMAB
     Indication: Rectal cancer
  2. TISLELIZUMAB [Suspect]
     Active Substance: TISLELIZUMAB
     Indication: Metastases to pelvis
  3. TISLELIZUMAB [Suspect]
     Active Substance: TISLELIZUMAB
     Route: 041
  4. TISLELIZUMAB [Suspect]
     Active Substance: TISLELIZUMAB
     Route: 041
  5. TISLELIZUMAB [Suspect]
     Active Substance: TISLELIZUMAB
  6. TISLELIZUMAB [Suspect]
     Active Substance: TISLELIZUMAB
  7. TISLELIZUMAB [Suspect]
     Active Substance: TISLELIZUMAB
     Route: 041
  8. TISLELIZUMAB [Suspect]
     Active Substance: TISLELIZUMAB
     Route: 041
  9. TISLELIZUMAB [Suspect]
     Active Substance: TISLELIZUMAB
  10. TISLELIZUMAB [Suspect]
     Active Substance: TISLELIZUMAB
  11. IRINOTECAN [Concomitant]
     Active Substance: IRINOTECAN
     Indication: Rectal cancer
  12. IRINOTECAN [Concomitant]
     Active Substance: IRINOTECAN
     Indication: Metastases to pelvis
  13. CAPECITABINE [Concomitant]
     Active Substance: CAPECITABINE
     Indication: Rectal cancer
  14. CAPECITABINE [Concomitant]
     Active Substance: CAPECITABINE
     Indication: Metastases to pelvis
  15. CETUXIMAB [Concomitant]
     Active Substance: CETUXIMAB
     Indication: Rectal cancer
  16. CETUXIMAB [Concomitant]
     Active Substance: CETUXIMAB
     Indication: Metastases to pelvis

REACTIONS (2)
  - Myelosuppression [Recovering/Resolving]
  - Goitre [Recovering/Resolving]
